FAERS Safety Report 23870063 (Version 1)
Quarter: 2024Q2

REPORT INFORMATION
  Report Type: Spontaneous
  Country: US (occurrence: US)
  Receive Date: 20240517
  Receipt Date: 20240517
  Transmission Date: 20240717
  Serious: No
  Sender: FDA-Public Use
  Company Number: US-SA-SAC20240511000134

PATIENT
  Sex: Male

DRUGS (1)
  1. DUPIXENT [Suspect]
     Active Substance: DUPILUMAB
     Indication: Dermatitis atopic
     Dosage: 300 MG, Q3W
     Route: 058

REACTIONS (5)
  - Hypotension [Recovering/Resolving]
  - Fall [Recovering/Resolving]
  - Feeling drunk [Recovering/Resolving]
  - Dermatitis atopic [Unknown]
  - Intentional product misuse [Unknown]
